FAERS Safety Report 20474202 (Version 6)
Quarter: 2024Q1

REPORT INFORMATION
  Report Type: Spontaneous
  Country: US (occurrence: US)
  Receive Date: 20220215
  Receipt Date: 20240103
  Transmission Date: 20240410
  Serious: Yes (Death, Hospitalization, Other)
  Sender: FDA-Public Use
  Company Number: US-PFIZER INC-202200223250

PATIENT
  Age: 91 Year
  Sex: Female
  Weight: 68.04 kg

DRUGS (12)
  1. VYNDAMAX [Suspect]
     Active Substance: TAFAMIDIS
     Indication: Cardiac failure congestive
     Dosage: 61 MG
     Route: 048
     Dates: start: 202102, end: 20231201
  2. VYNDAMAX [Suspect]
     Active Substance: TAFAMIDIS
     Indication: Amyloidosis
  3. IRON [Concomitant]
     Active Substance: IRON
     Indication: Anaemia
     Dosage: UNK
     Dates: end: 20231201
  4. CHOLECALCIFEROL [Concomitant]
     Active Substance: CHOLECALCIFEROL
     Dosage: UNK
     Dates: end: 20231201
  5. KLONOPIN [Concomitant]
     Active Substance: CLONAZEPAM
     Indication: Anxiety
     Dosage: UNK
     Dates: end: 20231201
  6. CARVEDILOL [Concomitant]
     Active Substance: CARVEDILOL
     Dosage: 6.25 UNK, 2X/DAY
     Dates: end: 20231201
  7. WARFARIN [Concomitant]
     Active Substance: WARFARIN
     Dosage: 2.5 UNK
     Dates: end: 20231201
  8. FUROSEMIDE [Concomitant]
     Active Substance: FUROSEMIDE
     Dosage: 2 MG
     Dates: end: 20231201
  9. ASPIRIN [Concomitant]
     Active Substance: ASPIRIN
     Dosage: UNK
     Dates: end: 20231201
  10. AMIODARONE [Concomitant]
     Active Substance: AMIODARONE
     Dosage: 200 MG
     Dates: end: 20231201
  11. SPIRONOLACTONE [Concomitant]
     Active Substance: SPIRONOLACTONE
     Dosage: 25 MG
     Dates: end: 20231201
  12. ATORVASTATIN [Concomitant]
     Active Substance: ATORVASTATIN
     Dosage: 20 MG
     Dates: end: 20231201

REACTIONS (17)
  - Drug ineffective [Fatal]
  - Loss of consciousness [Unknown]
  - Clavicle fracture [Unknown]
  - Shoulder fracture [Unknown]
  - Balance disorder [Unknown]
  - Fall [Unknown]
  - Hypotension [Unknown]
  - Pneumonia [Unknown]
  - Multiple fractures [Unknown]
  - Pelvic bone injury [Unknown]
  - Blindness unilateral [Unknown]
  - Pain [Unknown]
  - Weight decreased [Unknown]
  - Illness [Unknown]
  - Urinary tract infection [Unknown]
  - Decreased appetite [Unknown]
  - Pollakiuria [Unknown]

NARRATIVE: CASE EVENT DATE: 20210101
